FAERS Safety Report 7056694-8 (Version None)
Quarter: 2010Q4

REPORT INFORMATION
  Report Type: 
  Country: None (occurrence: None)
  Receive Date: 20101021
  Receipt Date: 20101018
  Transmission Date: 20110411
  Serious: Yes (Death, Hospitalization)
  Sender: FDA-Public Use
  Company Number: CA-AMGEN INC.-QUU434110

PATIENT

DRUGS (6)
  1. NEULASTA [Suspect]
     Indication: CHEMOTHERAPY
     Dosage: 6 MG, UNK
     Route: 058
     Dates: start: 20100604, end: 20100604
  2. DOXORUBICIN HCL [Concomitant]
     Dosage: UNK UNK, UNK
     Dates: start: 20100603
  3. CYCLOPHOSPHAMIDE [Concomitant]
     Dosage: UNK UNK, UNK
     Dates: start: 20100603
  4. VINCRISTINE SULFATE [Concomitant]
     Dosage: UNK UNK, UNK
     Dates: start: 20100603
  5. PREDNISONE [Concomitant]
     Dosage: UNK UNK, UNK
     Dates: start: 20100603
  6. RITUXIMAB [Concomitant]
     Dosage: UNK UNK, UNK
     Dates: start: 20100603

REACTIONS (2)
  - FEBRILE NEUTROPENIA [None]
  - SEPTIC SHOCK [None]
